FAERS Safety Report 4690588-8 (Version None)
Quarter: 2005Q2

REPORT INFORMATION
  Report Type: 
  Country: None (occurrence: None)
  Receive Date: 20050615
  Receipt Date: 20050607
  Transmission Date: 20051028
  Serious: Yes (Other)
  Sender: FDA-Public Use
  Company Number: IE-BOEHRINGER INGELHEIM PHARMACEUTICALS, INC.-2005-UK-01011IE

PATIENT
  Sex: Male

DRUGS (3)
  1. SPIRIVA [Suspect]
     Route: 055
     Dates: start: 20050406, end: 20050429
  2. GERIVENT [Concomitant]
  3. SERETIDE 125 EVOHALER [Concomitant]

REACTIONS (2)
  - FACE OEDEMA [None]
  - SKIN DISORDER [None]
